FAERS Safety Report 23172024 (Version 1)
Quarter: 2023Q4

REPORT INFORMATION
  Report Type: Spontaneous
  Country: DE (occurrence: DE)
  Receive Date: 20231110
  Receipt Date: 20231110
  Transmission Date: 20240109
  Serious: Yes (Other)
  Sender: FDA-Public Use
  Company Number: DE-BRISTOL-MYERS SQUIBB COMPANY-2023-161151

PATIENT
  Sex: Male

DRUGS (3)
  1. ELIQUIS [Suspect]
     Active Substance: APIXABAN
     Indication: Coronary artery disease
  2. ELIQUIS [Suspect]
     Active Substance: APIXABAN
     Indication: Atrial fibrillation
  3. CLOPIDOGREL [Concomitant]
     Active Substance: CLOPIDOGREL BISULFATE
     Indication: Product used for unknown indication

REACTIONS (1)
  - Cerebrovascular accident [Unknown]
